FAERS Safety Report 4388400-X (Version None)
Quarter: 2004Q2

REPORT INFORMATION
  Report Type: 
  Country: None (occurrence: None)
  Receive Date: 20040625
  Receipt Date: 20040616
  Transmission Date: 20050107
  Serious: Yes (Other)
  Sender: FDA-Public Use
  Company Number: HQWYE519018JUN04

PATIENT
  Age: 58 Year
  Sex: Male
  Weight: 143.46 kg

DRUGS (5)
  1. ADVIL [Suspect]
     Indication: ARTHRITIS
     Dosage: 2 TABLETS, ONCE A DAY, AS NEEDED, ORAL
     Route: 048
     Dates: start: 20040301, end: 20040615
  2. VALIUM [Concomitant]
  3. LOPRESSOR [Concomitant]
  4. COMPAZINE [Concomitant]
  5. AMBIEN [Concomitant]

REACTIONS (3)
  - BLOOD PRESSURE INCREASED [None]
  - CONDITION AGGRAVATED [None]
  - PALPITATIONS [None]
